FAERS Safety Report 9056335 (Version 4)
Quarter: 2013Q2

REPORT INFORMATION
  Report Type: Report from Study
  Country: ES (occurrence: ES)
  Receive Date: 20130204
  Receipt Date: 20130501
  Transmission Date: 20140414
  Serious: Yes (Hospitalization)
  Sender: FDA-Public Use
  Company Number: ES-BAYER-2013-010889

PATIENT
  Age: 54 Year
  Sex: Male
  Weight: 61 kg

DRUGS (16)
  1. REGORAFENIB [Suspect]
     Indication: ADENOCARCINOMA OF COLON
     Dosage: CYCLE 1
     Route: 048
     Dates: start: 20120807
  2. REGORAFENIB [Suspect]
     Indication: ADENOCARCINOMA OF COLON
     Dosage: 80 MG DAILY
     Route: 048
     Dates: start: 20130110, end: 20130111
  3. NEXIUM [Concomitant]
     Indication: PROPHYLAXIS
     Dosage: 40 MG DAILY
     Route: 048
     Dates: start: 2012
  4. FORTECORTIN [Concomitant]
     Dosage: 4 MG DAILY
     Route: 048
     Dates: start: 2012
  5. FENTANYL [Concomitant]
     Indication: ABDOMINAL PAIN UPPER
     Dosage: 50/ 72 H
     Route: 062
     Dates: start: 2012
  6. FENTANYL [Concomitant]
     Indication: PAIN
     Dosage: UNK
     Route: 060
     Dates: start: 20120905
  7. LANTUS [Concomitant]
     Indication: DIABETES MELLITUS
     Dosage: 80 U/ NIGHT
     Route: 058
     Dates: start: 201202
  8. ACTRAPID INSULIN NOVO [Concomitant]
     Indication: DIABETES MELLITUS
     Dosage: 80 U, TID
     Route: 058
     Dates: start: 201202
  9. OTHER DERMATOLOGICAL PREPARATIONS [Concomitant]
     Indication: PALMAR-PLANTAR ERYTHRODYSAESTHESIA SYNDROME
     Dosage: UNK
     Route: 061
     Dates: start: 20120912
  10. BENADON [Concomitant]
     Indication: PALMAR-PLANTAR ERYTHRODYSAESTHESIA SYNDROME
     Dosage: UNK/ 24 H
     Route: 048
     Dates: start: 20120912
  11. ENALAPRIL [Concomitant]
     Indication: HYPERTENSION
     Dosage: 30 MG DAILY
     Route: 048
     Dates: start: 20121114
  12. IBEROGAST [Concomitant]
     Indication: PAIN PROPHYLAXIS
     Dosage: 20 DROPS/ 8 H
     Route: 048
     Dates: start: 20121128
  13. AMLODIPINE [Concomitant]
     Indication: HYPERTENSION
     Dosage: 5 MG, BID
     Route: 048
     Dates: start: 20121128
  14. SEVREDOL [Concomitant]
     Indication: ABDOMINAL PAIN UPPER
     Dosage: 10 MG, PRN
     Route: 048
     Dates: start: 20121128
  15. SEVREDOL [Concomitant]
     Indication: PAIN PROPHYLAXIS
     Dosage: 20 MG DAILY
     Route: 048
     Dates: start: 20130111
  16. PARACETAMOL [Concomitant]
     Indication: PAIN PROPHYLAXIS
     Dosage: UNK UNK, PRN
     Dates: start: 20121128

REACTIONS (1)
  - Hepatotoxicity [Recovered/Resolved]
